FAERS Safety Report 9487300 (Version 2)
Quarter: 2013Q3

REPORT INFORMATION
  Report Type: Spontaneous
  Country: US (occurrence: US)
  Receive Date: 20130829
  Receipt Date: 20130829
  Transmission Date: 20140515
  Serious: Yes (Hospitalization)
  Sender: FDA-Public Use
  Company Number: US-BAXTER-2013BAX032829

PATIENT
  Age: 74 Year
  Sex: Male

DRUGS (2)
  1. DIANEAL LOW CALCIUM [Suspect]
     Indication: RENAL FAILURE
     Route: 033
     Dates: start: 201203
  2. DIANEAL LOW CALCIUM [Suspect]
     Route: 033
     Dates: start: 201308

REACTIONS (1)
  - Renal failure [Recovering/Resolving]
